FAERS Safety Report 24940466 (Version 1)
Quarter: 2025Q1

REPORT INFORMATION
  Report Type: Spontaneous
  Country: CA (occurrence: CA)
  Receive Date: 20250207
  Receipt Date: 20250207
  Transmission Date: 20250408
  Serious: Yes (Life-Threatening, Hospitalization, Other)
  Sender: AUROBINDO
  Company Number: CA-AUROBINDO-AUR-APL-2025-005793

PATIENT
  Age: 16 Year
  Sex: Female
  Weight: 56 kg

DRUGS (2)
  1. CLINDAMYCIN [Suspect]
     Active Substance: CLINDAMYCIN
     Indication: Tooth abscess
     Dosage: 300 MILLIGRAM, 3 TIMES A DAY
     Route: 048
  2. VYVANSE [Concomitant]
     Active Substance: LISDEXAMFETAMINE DIMESYLATE
     Indication: Product used for unknown indication
     Route: 065

REACTIONS (3)
  - Clostridium difficile colitis [Recovered/Resolved]
  - Hypovolaemia [Recovered/Resolved]
  - Intensive care [Recovered/Resolved]
